FAERS Safety Report 9361207 (Version 1)
Quarter: 2013Q2

REPORT INFORMATION
  Report Type: Spontaneous
  Country: US (occurrence: US)
  Receive Date: 20130621
  Receipt Date: 20130621
  Transmission Date: 20140414
  Serious: Yes (Other)
  Sender: FDA-Public Use
  Company Number: US-JNJFOC-20130608260

PATIENT
  Age: 37 Year
  Sex: Male
  Weight: 70.31 kg

DRUGS (5)
  1. FENTANYL MATRIX TRANSDERMAL SYSTEM [Suspect]
     Indication: SPINAL FRACTURE
     Route: 062
     Dates: start: 200604
  2. BACLOFEN [Concomitant]
     Indication: MUSCLE SPASTICITY
     Route: 048
     Dates: start: 2005
  3. COUMADIN [Concomitant]
     Indication: ANTICOAGULANT THERAPY
     Route: 048
     Dates: start: 2005, end: 201305
  4. RANIDINE [Concomitant]
     Indication: PROPHYLAXIS
     Route: 048
     Dates: start: 2005
  5. XARELATRO [Concomitant]
     Indication: ANTICOAGULANT THERAPY
     Route: 048
     Dates: start: 201305

REACTIONS (9)
  - Depression [Not Recovered/Not Resolved]
  - Suicidal ideation [Recovered/Resolved]
  - Decreased appetite [Not Recovered/Not Resolved]
  - Treatment noncompliance [Not Recovered/Not Resolved]
  - Withdrawal syndrome [Not Recovered/Not Resolved]
  - Pain [Not Recovered/Not Resolved]
  - Insomnia [Not Recovered/Not Resolved]
  - Anxiety [Not Recovered/Not Resolved]
  - Vomiting [None]
